FAERS Safety Report 14638998 (Version 2)
Quarter: 2018Q2

REPORT INFORMATION
  Report Type: Spontaneous
  Country: IT (occurrence: IT)
  Receive Date: 20180315
  Receipt Date: 20180416
  Transmission Date: 20180711
  Serious: Yes (Hospitalization, Other)
  Sender: FDA-Public Use
  Company Number: IT-SUN PHARMACEUTICAL INDUSTRIES LTD-2017RR-151207

PATIENT
  Age: 57 Year
  Sex: Male

DRUGS (1)
  1. LORAZEPAM. [Suspect]
     Active Substance: LORAZEPAM
     Indication: PRODUCT USED FOR UNKNOWN INDICATION
     Dosage: 5 MG DAILY (2.5 MG X 2)
     Route: 048
     Dates: start: 20170908, end: 20170910

REACTIONS (4)
  - Somnolence [Recovering/Resolving]
  - Urinary incontinence [Recovering/Resolving]
  - Confusional state [Recovering/Resolving]
  - Wrong drug administered [Unknown]

NARRATIVE: CASE EVENT DATE: 20170908
